FAERS Safety Report 15417027 (Version 1)
Quarter: 2018Q4

REPORT INFORMATION
  Report Type: Spontaneous
  Country: PL (occurrence: PL)
  Receive Date: 20180924
  Receipt Date: 20180924
  Transmission Date: 20190204
  Serious: Yes (Life-Threatening, Other)
  Sender: FDA-Public Use
  Company Number: PL-ACCORD-072063

PATIENT
  Age: 24 Year
  Sex: Male

DRUGS (6)
  1. DACARBAZINE. [Suspect]
     Active Substance: DACARBAZINE
     Indication: METASTATIC MALIGNANT MELANOMA
  2. BLEOMYCIN [Suspect]
     Active Substance: BLEOMYCIN SULFATE
     Indication: METASTATIC MALIGNANT MELANOMA
  3. LOMUSTINE. [Suspect]
     Active Substance: LOMUSTINE
     Indication: METASTATIC MALIGNANT MELANOMA
  4. VINBLASTINE [Suspect]
     Active Substance: VINBLASTINE
     Indication: METASTATIC MALIGNANT MELANOMA
  5. CISPLATIN. [Suspect]
     Active Substance: CISPLATIN
     Indication: METASTATIC MALIGNANT MELANOMA
  6. VINCRISTINE [Suspect]
     Active Substance: VINCRISTINE
     Indication: METASTATIC MALIGNANT MELANOMA

REACTIONS (2)
  - Drug ineffective [Unknown]
  - Off label use [Unknown]
